FAERS Safety Report 19810464 (Version 2)
Quarter: 2022Q3

REPORT INFORMATION
  Report Type: Report from Study
  Country: US (occurrence: None)
  Receive Date: 20210909
  Receipt Date: 20220725
  Transmission Date: 20221027
  Serious: Yes (Hospitalization)
  Sender: FDA-Public Use
  Company Number: US-MERCK HEALTHCARE KGAA-9263565

PATIENT
  Sex: Male

DRUGS (3)
  1. REBIF [Suspect]
     Active Substance: INTERFERON BETA-1A
     Indication: Multiple sclerosis
     Dosage: FOR WEEK 1 AND 2
     Route: 058
     Dates: start: 20210830, end: 202109
  2. REBIF [Suspect]
     Active Substance: INTERFERON BETA-1A
     Dosage: FOR WEEK 3 AND 4
     Route: 058
     Dates: start: 202109, end: 2021
  3. REBIF [Suspect]
     Active Substance: INTERFERON BETA-1A
     Route: 058
     Dates: start: 2021

REACTIONS (2)
  - Pneumonia aspiration [Unknown]
  - Sialoadenitis [Unknown]
